FAERS Safety Report 22873781 (Version 7)
Quarter: 2025Q2

REPORT INFORMATION
  Report Type: Spontaneous
  Country: CA (occurrence: CA)
  Receive Date: 20230828
  Receipt Date: 20250528
  Transmission Date: 20250717
  Serious: Yes (Hospitalization, Other)
  Sender: BIOMARIN
  Company Number: CA-SA-SAC20230719000091

PATIENT

DRUGS (3)
  1. LARONIDASE [Suspect]
     Active Substance: LARONIDASE
     Indication: Mucopolysaccharidosis I
     Dosage: 40.6 MG, QW
     Route: 041
     Dates: start: 20061102
  2. LARONIDASE [Suspect]
     Active Substance: LARONIDASE
     Dosage: 46.4 MG, QW
     Route: 041
  3. ALTEPLASE [Concomitant]
     Active Substance: ALTEPLASE
     Indication: Product used for unknown indication

REACTIONS (25)
  - Device related infection [Recovered/Resolved]
  - Medical device site pustule [Recovered/Resolved]
  - Condition aggravated [Recovered/Resolved]
  - Medical device site discomfort [Recovered/Resolved]
  - Medical device site swelling [Recovered/Resolved]
  - Medical device site pruritus [Recovered/Resolved]
  - Medical device site erythema [Recovered/Resolved]
  - Dermatitis contact [Recovered/Resolved]
  - Chest pain [Recovered/Resolved]
  - Tachycardia [Recovered/Resolved]
  - Dyspnoea [Recovered/Resolved]
  - Central venous catheterisation [Recovering/Resolving]
  - Central venous catheter removal [Recovering/Resolving]
  - Condition aggravated [Recovering/Resolving]
  - Procedural pain [Recovered/Resolved]
  - Jugular vein thrombosis [Recovered/Resolved]
  - Incision site pruritus [Recovered/Resolved]
  - Swelling [Recovered/Resolved]
  - Procedural complication [Recovering/Resolving]
  - Incision site discharge [Recovered/Resolved]
  - Carpal tunnel syndrome [Recovered/Resolved]
  - Trigger finger [Recovered/Resolved]
  - Pain in extremity [Recovered/Resolved]
  - Abscess [Recovered/Resolved]
  - Incision site erythema [Recovered/Resolved]

NARRATIVE: CASE EVENT DATE: 20160401
